APPROVED DRUG PRODUCT: MOXIFLOXACIN HYDROCHLORIDE IN SODIUM CHLORIDE 0.8% IN PLASTIC CONTAINER
Active Ingredient: MOXIFLOXACIN HYDROCHLORIDE
Strength: 400MG/250ML (1.6MG/ML)
Dosage Form/Route: SOLUTION;INTRAVENOUS
Application: A205833 | Product #001
Applicant: MYLAN LABORATORIES LTD
Approved: May 5, 2017 | RLD: No | RS: Yes | Type: RX